FAERS Safety Report 4806671-X (Version None)
Quarter: 2005Q4

REPORT INFORMATION
  Report Type: 
  Country: None (occurrence: None)
  Receive Date: 20051021
  Receipt Date: 20051011
  Transmission Date: 20060501
  Serious: Yes (Disabling)
  Sender: FDA-Public Use
  Company Number: FR-ABBOTT-05P-056-0313404-00

PATIENT
  Age: 73 Year
  Sex: Male

DRUGS (1)
  1. DEPAKENE [Suspect]
     Indication: EPILEPSY
     Route: 048
     Dates: start: 20000101, end: 20050715

REACTIONS (7)
  - AKINESIA [None]
  - BEDRIDDEN [None]
  - COGNITIVE DISORDER [None]
  - COGWHEEL RIGIDITY [None]
  - DEMENTIA [None]
  - GAIT DISTURBANCE [None]
  - PARKINSONISM [None]
